FAERS Safety Report 17534395 (Version 1)
Quarter: 2020Q1

REPORT INFORMATION
  Report Type: Report from Study
  Country: GB (occurrence: GB)
  Receive Date: 20200312
  Receipt Date: 20200312
  Transmission Date: 20200409
  Serious: Yes (Other)
  Sender: FDA-Public Use
  Company Number: GB-CASPER PHARMA LLC-2020CAS000119

PATIENT
  Age: 21 Year
  Sex: Female

DRUGS (1)
  1. BISMUTH, METRONIDAZOLE, TETRACYCLIN [Suspect]
     Active Substance: BISMUTH SUBSALICYLATE\METRONIDAZOLE\TETRACYCLINE HYDROCHLORIDE
     Indication: GASTROINTESTINAL BACTERIAL OVERGROWTH
     Dosage: 400 MILLIGRAM, BID
     Route: 048

REACTIONS (2)
  - Acute hepatic failure [Unknown]
  - Pneumonia aspiration [Unknown]
